FAERS Safety Report 5816670-7 (Version None)
Quarter: 2008Q3

REPORT INFORMATION
  Report Type: 
  Country: None (occurrence: None)
  Receive Date: 20080721
  Receipt Date: 20080710
  Transmission Date: 20090109
  Serious: Yes (Hospitalization, Other)
  Sender: FDA-Public Use
  Company Number: US-PFIZER INC-2008056987

PATIENT
  Sex: Female
  Weight: 63.5 kg

DRUGS (2)
  1. MARAVIROC [Suspect]
     Indication: HIV TEST POSITIVE
     Route: 048
  2. TRUVADA [Concomitant]
     Indication: HIV TEST POSITIVE
     Dosage: TEXT:200MG/300MG-FREQ:DAILY
     Route: 048

REACTIONS (2)
  - BREAST CALCIFICATIONS [None]
  - BREAST CANCER [None]
